FAERS Safety Report 6026319-9 (Version None)
Quarter: 2008Q4

REPORT INFORMATION
  Report Type: 
  Country: None (occurrence: None)
  Receive Date: 20081230
  Receipt Date: 20081218
  Transmission Date: 20090506
  Serious: Yes (Life-Threatening, Hospitalization)
  Sender: FDA-Public Use
  Company Number: 20085898

PATIENT
  Age: 13 Year
  Sex: Female

DRUGS (1)
  1. LIORESAL [Suspect]
     Indication: MUSCLE SPASTICITY
     Dosage: 150-179.9 MCG, DAILY, INTRATHECAL
     Route: 037

REACTIONS (11)
  - APNOEA [None]
  - ASTHENIA [None]
  - CATHETER RELATED COMPLICATION [None]
  - COMA [None]
  - DEVICE MALFUNCTION [None]
  - FATIGUE [None]
  - GAIT SPASTIC [None]
  - MIOSIS [None]
  - OVERDOSE [None]
  - RESPIRATORY ARREST [None]
  - SOMNOLENCE [None]
